FAERS Safety Report 7729680-X (Version None)
Quarter: 2011Q3

REPORT INFORMATION
  Report Type: 
  Country: None (occurrence: None)
  Receive Date: 20110906
  Receipt Date: 20110826
  Transmission Date: 20111222
  Serious: Yes (Other)
  Sender: FDA-Public Use
  Company Number: US-BAYER-2011-007251

PATIENT
  Age: 23 Year
  Sex: Female
  Weight: 63.492 kg

DRUGS (11)
  1. NSAID'S [Concomitant]
     Dosage: UNK
     Dates: start: 19900101
  2. DROSPIRENONE AND ETHINYL ESTRADIOL [Suspect]
     Indication: CONTRACEPTION
     Dosage: UNK
     Route: 048
     Dates: start: 20070101, end: 20090101
  3. PREDNISONE [Concomitant]
  4. ATROVENT [Concomitant]
     Dosage: UNK
     Dates: start: 20050101
  5. FLOVENT [Concomitant]
  6. OMEPRAZOLE [Concomitant]
  7. ST. JOHN'S WORT [Concomitant]
     Dosage: UNK
     Dates: start: 20080101
  8. ADVAIR DISKUS 100/50 [Concomitant]
     Dosage: UNK
     Dates: start: 20090101
  9. YASMIN [Suspect]
     Indication: CONTRACEPTION
     Dosage: UNK
     Route: 048
     Dates: start: 20070101, end: 20090101
  10. ALBUTEROL SULFATE AUTOHALER [Concomitant]
  11. KETOROLAC TROMETHAMINE [Concomitant]

REACTIONS (2)
  - GALLBLADDER DISORDER [None]
  - PAIN [None]
